FAERS Safety Report 4327888-7 (Version None)
Quarter: 2004Q1

REPORT INFORMATION
  Report Type: 
  Country: None (occurrence: None)
  Receive Date: 20040325
  Receipt Date: 20040315
  Transmission Date: 20041129
  Serious: Yes (Life-Threatening)
  Sender: FDA-Public Use
  Company Number: K200400382

PATIENT
  Age: 69 Year
  Sex: Male

DRUGS (4)
  1. FLORINEF [Suspect]
     Indication: HYPERTENSION
     Dosage: 200 MCG, QD, ORAL
     Route: 048
     Dates: start: 20030801
  2. MIDODRINE HCL [Suspect]
     Indication: ORTHOSTATIC HYPOTENSION
     Dosage: 25MG, QD, ORAL
     Route: 048
     Dates: start: 20030801
  3. PREDNISOLONE [Concomitant]
  4. SINEMET [Concomitant]

REACTIONS (2)
  - CEREBRAL INFARCTION [None]
  - CEREBROVASCULAR ACCIDENT [None]
